FAERS Safety Report 9232312 (Version 3)
Quarter: 2013Q3

REPORT INFORMATION
  Report Type: Report from Study
  Country: BE (occurrence: BE)
  Receive Date: 20130416
  Receipt Date: 20130822
  Transmission Date: 20140515
  Serious: Yes (Death, Life-Threatening, Hospitalization)
  Sender: FDA-Public Use
  Company Number: BE-BRISTOL-MYERS SQUIBB COMPANY-18711242

PATIENT
  Age: 73 Year
  Sex: Male
  Weight: 87 kg

DRUGS (10)
  1. ERBITUX SOLN FOR INF 5MG/ML [Suspect]
     Indication: COLORECTAL CANCER METASTATIC
     Dosage: WITHDRAWN 14MAR13
     Route: 042
     Dates: start: 20121003, end: 20130306
  2. OXALIPLATIN [Suspect]
     Indication: COLORECTAL CANCER METASTATIC
     Dosage: WITHDRAWN 14MAR13
     Route: 042
     Dates: start: 20120919, end: 20130306
  3. 5-FLUOROURACIL [Suspect]
     Indication: COLORECTAL CANCER METASTATIC
     Dosage: WITHDRAWN 14MAR13
     Route: 042
     Dates: start: 20120919, end: 20130306
  4. ELVORINE [Suspect]
     Indication: COLORECTAL CANCER METASTATIC
     Dosage: WITHDRAWN 14MAR13
     Route: 042
     Dates: start: 20120919, end: 20130306
  5. ASAFLOW [Concomitant]
     Route: 048
     Dates: start: 20120915
  6. FUROSEMIDE [Concomitant]
     Indication: HYPERTENSION
     Dates: start: 20120915
  7. FUROSEMIDE [Concomitant]
     Indication: PULMONARY OEDEMA
     Dates: start: 20120915
  8. ZESTRIL [Concomitant]
     Indication: HYPERTENSION
     Route: 048
     Dates: start: 20120915
  9. ISOPTIN [Concomitant]
     Indication: HYPERTENSION
     Route: 048
     Dates: start: 20120915
  10. AMLOR [Concomitant]
     Indication: HYPERTENSION
     Route: 048
     Dates: start: 20120915

REACTIONS (1)
  - Pneumonia [Fatal]
